FAERS Safety Report 21548885 (Version 1)
Quarter: 2022Q4

REPORT INFORMATION
  Report Type: Spontaneous
  Country: US (occurrence: None)
  Receive Date: 20221102
  Receipt Date: 20221102
  Transmission Date: 20230113
  Serious: No
  Sender: FDA-Public Use
  Company Number: None

PATIENT
  Age: 47 Year
  Sex: Female

DRUGS (1)
  1. COSENTYX [Suspect]
     Active Substance: SECUKINUMAB
     Indication: Psoriatic arthropathy
     Dosage: OTHER FREQUENCY : EVERY MONTH;?
     Route: 058
     Dates: start: 20220527

REACTIONS (4)
  - Oral pain [None]
  - Oral mucosal erythema [None]
  - Stomatitis [None]
  - Mouth ulceration [None]
